FAERS Safety Report 6532080-1 (Version None)
Quarter: 2010Q1

REPORT INFORMATION
  Report Type: 
  Country: None (occurrence: None)
  Receive Date: 20100108
  Receipt Date: 20091231
  Transmission Date: 20100710
  Serious: Yes (Other)
  Sender: FDA-Public Use
  Company Number: GXKR2009FR13952

PATIENT
  Age: 60 Year
  Sex: Female

DRUGS (12)
  1. HYDROXYZINE (NGX) [Suspect]
     Dosage: 100 MG, ONCE/SINGLE
     Route: 042
  2. METHYLPREDNISOLONE [Concomitant]
     Dosage: 80 MG, UNK
     Route: 065
  3. METHYLPREDNISOLONE [Concomitant]
     Dosage: 40 MG, UNK
     Route: 042
  4. PROPOFOL [Concomitant]
     Indication: GENERAL ANAESTHESIA
     Route: 042
  5. MIDAZOLAM HCL [Concomitant]
     Indication: GENERAL ANAESTHESIA
     Route: 065
  6. SUFENTANIL CITRATE [Concomitant]
     Indication: GENERAL ANAESTHESIA
     Route: 065
  7. SEVOFLURANE [Concomitant]
     Indication: MAINTENANCE OF ANAESTHESIA
     Route: 065
  8. POVIDONE IODINE [Concomitant]
     Route: 065
  9. LOSARTAN [Concomitant]
     Route: 065
  10. LEVOTHYROXINE SODIUM [Concomitant]
     Route: 065
  11. FENOFIBRATE [Concomitant]
     Route: 065
  12. LORAZEPAM [Concomitant]
     Dosage: AT EVENING
     Route: 065

REACTIONS (4)
  - ANAPHYLACTIC REACTION [None]
  - BLOOD PRESSURE DECREASED [None]
  - BRONCHOSPASM [None]
  - HYPERCAPNIA [None]
